FAERS Safety Report 25513906 (Version 1)
Quarter: 2025Q3

REPORT INFORMATION
  Report Type: Spontaneous
  Country: US (occurrence: US)
  Receive Date: 20250703
  Receipt Date: 20250703
  Transmission Date: 20251021
  Serious: No
  Sender: SANOFI AVENTIS
  Company Number: US-SA-2025SA186369

PATIENT
  Age: 74 Year
  Sex: Male

DRUGS (31)
  1. DUPIXENT [Suspect]
     Active Substance: DUPILUMAB
     Indication: Chronic obstructive pulmonary disease
     Dosage: 300 MG, QOW
     Route: 058
  2. ACETAMINOPHEN [Concomitant]
     Active Substance: ACETAMINOPHEN
  3. ALBUTEROL [Concomitant]
     Active Substance: ALBUTEROL
  4. ASPIRIN [Concomitant]
     Active Substance: ASPIRIN
  5. ATORVASTATIN [Concomitant]
     Active Substance: ATORVASTATIN
  6. AZELASTINE [Concomitant]
     Active Substance: AZELASTINE
  7. CAPSAICIN [Concomitant]
     Active Substance: CAPSAICIN
  8. DOFETILIDE [Concomitant]
     Active Substance: DOFETILIDE
  9. ELIQUIS [Concomitant]
     Active Substance: APIXABAN
  10. EPINEPHRINE [Concomitant]
     Active Substance: EPINEPHRINE
  11. ESCITALOPRAM [Concomitant]
     Active Substance: ESCITALOPRAM OXALATE
  12. FARXIGA [Concomitant]
     Active Substance: DAPAGLIFLOZIN PROPANEDIOL
  13. HYDROMORPHONE [Concomitant]
     Active Substance: HYDROMORPHONE
  14. LUBIPROSTONE [Concomitant]
     Active Substance: LUBIPROSTONE
  15. MIRTAZAPINE [Concomitant]
     Active Substance: MIRTAZAPINE
  16. MOVANTIK [Concomitant]
     Active Substance: NALOXEGOL OXALATE
  17. FERROUS SULFATE [Concomitant]
     Active Substance: FERROUS SULFATE
  18. FLUOXETINE [Concomitant]
     Active Substance: FLUOXETINE HYDROCHLORIDE
  19. FLUTICASONE PROPIONATE [Concomitant]
     Active Substance: FLUTICASONE PROPIONATE
  20. ISOSORBIDE [Concomitant]
     Active Substance: ISOSORBIDE
  21. LIDOCAINE [Concomitant]
     Active Substance: LIDOCAINE
  22. NARCAN [Concomitant]
     Active Substance: NALOXONE HYDROCHLORIDE
  23. NITROGLYCERIN [Concomitant]
     Active Substance: NITROGLYCERIN
  24. OMEPRAZOLE [Concomitant]
     Active Substance: OMEPRAZOLE
  25. POTASSIUM [Concomitant]
     Active Substance: POTASSIUM
  26. TAMSULOSIN [Concomitant]
     Active Substance: TAMSULOSIN
  27. TESTOSTERONE [Concomitant]
     Active Substance: TESTOSTERONE
  28. TORSEMIDE [Concomitant]
     Active Substance: TORSEMIDE
  29. TRELEGY ELLIPTA [Concomitant]
     Active Substance: FLUTICASONE FUROATE\UMECLIDINIUM BROMIDE\VILANTEROL TRIFENATATE
  30. VITAMIN D NOS [Concomitant]
     Active Substance: CHOLECALCIFEROL\ERGOCALCIFEROL
  31. .ALPHA.-TOCOPHEROL [Concomitant]
     Active Substance: .ALPHA.-TOCOPHEROL

REACTIONS (3)
  - Dyspnoea exertional [Unknown]
  - Dyspnoea [Unknown]
  - Gastric operation [Unknown]
